FAERS Safety Report 6722639-0 (Version None)
Quarter: 2010Q2

REPORT INFORMATION
  Report Type: 
  Country: None (occurrence: None)
  Receive Date: 20100512
  Receipt Date: 20100506
  Transmission Date: 20101027
  Serious: Yes (Other)
  Sender: FDA-Public Use
  Company Number: GB-CVT-100308

PATIENT

DRUGS (13)
  1. RANEXA [Suspect]
     Indication: ANGINA PECTORIS
     Dosage: 375 MG, BID
     Route: 048
     Dates: end: 20100311
  2. SIMVASTATIN [Concomitant]
  3. DIGOXIN                            /00017701/ [Concomitant]
  4. RAMIPRIL                           /00885601/ [Concomitant]
  5. AMLODIPINE BESYLATE [Concomitant]
  6. BISOPROLOL FUMARATE [Concomitant]
  7. NICORANDIL [Concomitant]
  8. GLYCERYL TRINITRATE [Concomitant]
  9. ISOSORBIDE MONONITRATE [Concomitant]
  10. WARFARIN SODIUM [Concomitant]
  11. FRUSEMIDE [Concomitant]
  12. ALLOPURINOL [Concomitant]
  13. ALENDRONIC ACID [Concomitant]

REACTIONS (1)
  - DERMATITIS EXFOLIATIVE [None]
